FAERS Safety Report 9363017 (Version 1)
Quarter: 2013Q2

REPORT INFORMATION
  Report Type: Spontaneous
  Country: US (occurrence: None)
  Receive Date: 20130621
  Receipt Date: 20130621
  Transmission Date: 20140414
  Serious: Yes (Other)
  Sender: FDA-Public Use
  Company Number: None

PATIENT
  Age: 69 Year
  Sex: Female
  Weight: 68.04 kg

DRUGS (2)
  1. ALBUTEROL SULFATE [Suspect]
     Indication: CHRONIC OBSTRUCTIVE PULMONARY DISEASE
     Dosage: 0.083% 2.5MG/3ML, 4-TIMES A DAY, INHAL
     Route: 055
     Dates: start: 20050202, end: 20130620
  2. IPRATROPIUM BROMIDE [Suspect]
     Indication: CHRONIC OBSTRUCTIVE PULMONARY DISEASE
     Dosage: 0.02% 0.5MG/2.5ML, 4-TIMES A DAY, INHAL
     Route: 055
     Dates: start: 20050202, end: 20130620

REACTIONS (5)
  - Dyspnoea [None]
  - Loss of consciousness [None]
  - Apparent death [None]
  - Fall [None]
  - Product quality issue [None]
